FAERS Safety Report 19137388 (Version 21)
Quarter: 2025Q3

REPORT INFORMATION
  Report Type: Report from Study
  Country: EU (occurrence: EU)
  Receive Date: 20210414
  Receipt Date: 20250905
  Transmission Date: 20251020
  Serious: Yes (Other)
  Sender: ABBVIE
  Company Number: EU-ABBVIE-20K-056-3480765-00

PATIENT
  Age: 67 Year
  Sex: Female
  Weight: 48 kg

DRUGS (41)
  1. VENETOCLAX [Suspect]
     Active Substance: VENETOCLAX
     Indication: Chronic lymphocytic leukaemia
     Route: 048
     Dates: start: 20200421, end: 20200426
  2. VENETOCLAX [Suspect]
     Active Substance: VENETOCLAX
     Indication: Chronic lymphocytic leukaemia
     Route: 048
     Dates: start: 20200427, end: 20200503
  3. VENETOCLAX [Suspect]
     Active Substance: VENETOCLAX
     Indication: Chronic lymphocytic leukaemia
     Route: 048
     Dates: start: 20200504, end: 20200510
  4. VENETOCLAX [Suspect]
     Active Substance: VENETOCLAX
     Indication: Chronic lymphocytic leukaemia
     Route: 048
     Dates: start: 20200518, end: 20211107
  5. VENETOCLAX [Suspect]
     Active Substance: VENETOCLAX
     Indication: Chronic lymphocytic leukaemia
     Route: 048
     Dates: start: 20200511, end: 20200517
  6. VENETOCLAX [Suspect]
     Active Substance: VENETOCLAX
     Indication: Chronic lymphocytic leukaemia
     Route: 048
     Dates: start: 20211117, end: 20220509
  7. VENETOCLAX [Suspect]
     Active Substance: VENETOCLAX
     Indication: Chronic lymphocytic leukaemia
     Route: 048
     Dates: start: 20211108, end: 20211116
  8. VENETOCLAX [Suspect]
     Active Substance: VENETOCLAX
     Indication: Chronic lymphocytic leukaemia
     Route: 048
     Dates: start: 20200615
  9. VENETOCLAX [Suspect]
     Active Substance: VENETOCLAX
     Indication: Chronic lymphocytic leukaemia
     Route: 048
     Dates: start: 20231009, end: 20231009
  10. VENETOCLAX [Suspect]
     Active Substance: VENETOCLAX
     Indication: Chronic lymphocytic leukaemia
     Route: 048
     Dates: start: 20220510, end: 20231008
  11. RITUXIMAB [Concomitant]
     Active Substance: RITUXIMAB
     Indication: Chronic lymphocytic leukaemia
     Route: 065
     Dates: start: 20200518, end: 20201005
  12. IMBRUVICA [Suspect]
     Active Substance: IBRUTINIB
     Indication: Chronic lymphocytic leukaemia
     Route: 048
     Dates: start: 20170123, end: 20181025
  13. ALLOPURINOL [Concomitant]
     Active Substance: ALLOPURINOL
     Indication: Prophylaxis
     Dates: start: 20200302, end: 202005
  14. HIZENTRA [Concomitant]
     Active Substance: HUMAN IMMUNOGLOBULIN G
     Indication: Infection prophylaxis
     Route: 065
     Dates: start: 20200427, end: 20211205
  15. ERYTHROPOIETIN [Concomitant]
     Active Substance: ERYTHROPOIETIN
     Indication: Anaemia prophylaxis
     Route: 065
     Dates: start: 20200421, end: 20230531
  16. TRUXIMA [Concomitant]
     Active Substance: RITUXIMAB-ABBS
     Indication: Chronic lymphocytic leukaemia
     Route: 065
     Dates: start: 20200518, end: 20201005
  17. COTRIMOXAZOLE [Concomitant]
     Active Substance: SULFAMETHOXAZOLE\TRIMETHOPRIM
     Indication: Antibiotic prophylaxis
     Route: 065
     Dates: start: 20221121, end: 20221127
  18. COTRIMOXAZOLE [Concomitant]
     Active Substance: SULFAMETHOXAZOLE\TRIMETHOPRIM
     Indication: Antibiotic prophylaxis
     Route: 065
     Dates: start: 20200615, end: 20230531
  19. VALACYCLOVIR HYDROCHLORIDE [Concomitant]
     Active Substance: VALACYCLOVIR HYDROCHLORIDE
     Indication: Antiviral prophylaxis
     Route: 065
     Dates: start: 20200615, end: 20230531
  20. LEUCOVORIN CALCIUM [Concomitant]
     Active Substance: LEUCOVORIN CALCIUM
     Indication: Anaemia prophylaxis
     Route: 065
     Dates: start: 20200615, end: 20230531
  21. ACETAMINOPHEN [Concomitant]
     Active Substance: ACETAMINOPHEN
     Indication: Allergy prophylaxis
     Route: 065
     Dates: start: 20200518
  22. POLARAMINE [Concomitant]
     Active Substance: DEXCHLORPHENIRAMINE MALEATE
     Indication: Allergy prophylaxis
     Route: 065
     Dates: start: 20200518, end: 20200712
  23. METHYLPREDNISOLONE [Concomitant]
     Active Substance: METHYLPREDNISOLONE
     Indication: Allergy prophylaxis
     Route: 065
     Dates: start: 20200518, end: 20230531
  24. LORATADINE [Concomitant]
     Active Substance: LORATADINE
     Indication: Allergy prophylaxis
     Route: 065
     Dates: start: 20200713, end: 20230531
  25. PEGFILGRASTIM [Concomitant]
     Active Substance: PEGFILGRASTIM
     Indication: Prophylaxis
     Route: 065
     Dates: start: 20200505, end: 20200612
  26. PEGFILGRASTIM [Concomitant]
     Active Substance: PEGFILGRASTIM
     Indication: Prophylaxis
     Route: 065
     Dates: start: 20210518, end: 20230531
  27. PEGFILGRASTIM [Concomitant]
     Active Substance: PEGFILGRASTIM
     Indication: Prophylaxis
     Route: 065
     Dates: start: 20200128, end: 20200128
  28. INFLUENZA VIRUS VACCINE [Concomitant]
     Active Substance: INFLUENZA VIRUS VACCINE
     Indication: Antiviral prophylaxis
     Route: 065
     Dates: start: 2020, end: 2020
  29. CUVITRU [Concomitant]
     Active Substance: HUMAN IMMUNOGLOBULIN G
     Indication: Infection prophylaxis
     Route: 065
     Dates: start: 20211206, end: 20231002
  30. Comirnaty [Concomitant]
     Indication: COVID-19 prophylaxis
     Route: 065
     Dates: start: 202109, end: 202109
  31. Comirnaty [Concomitant]
     Indication: COVID-19 prophylaxis
     Route: 065
     Dates: start: 20210422, end: 20210422
  32. Comirnaty [Concomitant]
     Indication: COVID-19 prophylaxis
     Route: 065
     Dates: start: 20210401, end: 20210401
  33. AMOXICILLIN [Concomitant]
     Active Substance: AMOXICILLIN
     Indication: Chronic sinusitis
     Route: 065
     Dates: start: 20221130, end: 20221206
  34. PEGYLATED GRANULOCYTE COLONY-STIMULATING FACTOR [Concomitant]
     Active Substance: PEGYLATED GRANULOCYTE COLONY-STIMULATING FACTOR
     Indication: Prophylaxis
     Route: 065
     Dates: start: 202011, end: 202011
  35. SOOLANTRA [Concomitant]
     Active Substance: IVERMECTIN
     Indication: Papulopustular rosacea
     Route: 065
     Dates: start: 20210929, end: 20230531
  36. DIPROSONE [Concomitant]
     Active Substance: BETAMETHASONE DIPROPIONATE
     Indication: Chronic lymphocytic leukaemia
     Route: 065
     Dates: start: 20210929, end: 20211013
  37. DIPROSONE [Concomitant]
     Active Substance: BETAMETHASONE DIPROPIONATE
     Indication: Chronic lymphocytic leukaemia
     Route: 065
     Dates: start: 20230930
  38. METRONIDAZOLE [Concomitant]
     Active Substance: METRONIDAZOLE
     Indication: Papulopustular rosacea
     Route: 065
     Dates: start: 20210929, end: 20230531
  39. DOXYCYCLINE [Concomitant]
     Active Substance: DOXYCYCLINE
     Indication: Papulopustular rosacea
     Route: 065
     Dates: start: 20210929, end: 20230531
  40. AUGMENTIN [Concomitant]
     Active Substance: AMOXICILLIN\CLAVULANATE POTASSIUM
     Indication: Rhinorrhoea
     Dates: start: 202301, end: 202301
  41. EVUSHELD [Concomitant]
     Active Substance: CILGAVIMAB\TIXAGEVIMAB
     Indication: COVID-19 prophylaxis
     Route: 065
     Dates: start: 20220121, end: 20220121

REACTIONS (17)
  - Invasive lobular breast carcinoma [Not Recovered/Not Resolved]
  - Thrombocytopenia [Recovered/Resolved]
  - Hypogammaglobulinaemia [Unknown]
  - Thrombocytopenia [Recovered/Resolved]
  - Neutropenia [Recovered/Resolved]
  - Neutropenia [Recovered/Resolved]
  - Cystitis [Not Recovered/Not Resolved]
  - Decreased appetite [Not Recovered/Not Resolved]
  - Ear haemorrhage [Recovered/Resolved]
  - Hypercalcaemia [Recovered/Resolved]
  - Hyperkalaemia [Recovered/Resolved]
  - Gastroenteritis [Recovered/Resolved]
  - Neutropenia [Not Recovered/Not Resolved]
  - Rhinorrhoea [Recovered/Resolved]
  - Neutropenia [Recovered/Resolved]
  - Eczema [Not Recovered/Not Resolved]
  - Chronic lymphocytic leukaemia [Not Recovered/Not Resolved]

NARRATIVE: CASE EVENT DATE: 20200502
